FAERS Safety Report 14322228 (Version 1)
Quarter: 2017Q4

REPORT INFORMATION
  Report Type: Spontaneous
  Country: RO (occurrence: RO)
  Receive Date: 20171225
  Receipt Date: 20171225
  Transmission Date: 20180321
  Serious: Yes (Death, Hospitalization, Other)
  Sender: FDA-Public Use
  Company Number: RO-AUROBINDO-AUR-APL-2017-47063

PATIENT
  Age: 73 Year
  Sex: Female
  Weight: 80 kg

DRUGS (2)
  1. RIBAVIRIN FILM COATED TABLETS [Suspect]
     Active Substance: RIBAVIRIN
     Indication: PRODUCT USED FOR UNKNOWN INDICATION
     Dosage: UNK
     Route: 065
     Dates: start: 20170808, end: 20171027
  2. HARVONI [Suspect]
     Active Substance: LEDIPASVIR\SOFOSBUVIR
     Indication: HEPATIC CIRRHOSIS
     Dosage: 1 DF, ONCE A DAY
     Route: 048
     Dates: start: 20170808, end: 20171031

REACTIONS (6)
  - Hepatic encephalopathy [Fatal]
  - Melaena [Unknown]
  - Upper gastrointestinal haemorrhage [Fatal]
  - Thrombocytopenia [Unknown]
  - Cough [Unknown]
  - Hepatorenal failure [Not Recovered/Not Resolved]

NARRATIVE: CASE EVENT DATE: 2017
